FAERS Safety Report 8675190 (Version 2)
Quarter: 2012Q4

REPORT INFORMATION
  Report Type: 
  Country: FR (occurrence: FR)
  Receive Date: 20120720
  Receipt Date: 20121030
  Transmission Date: 20130627
  Serious: Yes (Death, Hospitalization)
  Sender: FDA-Public Use
  Company Number: FR-ALEXION PHARMACEUTICALS INC.-A201201338

PATIENT
  Age: 30 None

DRUGS (3)
  1. SOLIRIS 300MG [Suspect]
     Indication: PAROXYSMAL NOCTURNAL HAEMOGLOBINURIA
     Dosage: UNK
     Route: 042
     Dates: start: 20120418
  2. SOLIRIS 300MG [Suspect]
     Dosage: 900 mg, q2w
  3. FLUINDIONE [Concomitant]
     Dosage: UNK
     Route: 048
     Dates: start: 2006

REACTIONS (5)
  - Cardiac arrest [Fatal]
  - Staphylococcal infection [Recovering/Resolving]
  - Agranulocytosis [Recovered/Resolved]
  - Sinusitis [Recovered/Resolved]
  - Blood creatinine increased [Recovering/Resolving]
